FAERS Safety Report 8170200-6 (Version None)
Quarter: 2012Q1

REPORT INFORMATION
  Report Type: 
  Country: None (occurrence: None)
  Receive Date: 20120228
  Receipt Date: 20120217
  Transmission Date: 20120608
  Serious: Yes (Other)
  Sender: FDA-Public Use
  Company Number: IE-MILLENNIUM PHARMACEUTICALS, INC.-2012-00958

PATIENT

DRUGS (5)
  1. VELCADE [Suspect]
     Indication: MULTIPLE MYELOMA
     Dosage: 1.9 MG, UNK
     Route: 042
     Dates: start: 20120130, end: 20120202
  2. ASPIRIN [Concomitant]
  3. LEXAPRO [Concomitant]
     Indication: ANXIETY
  4. XANAX [Concomitant]
     Indication: ANXIETY
  5. ZOLPIDEM TARTRATE [Concomitant]

REACTIONS (1)
  - INFUSION SITE DERMATITIS [None]
